FAERS Safety Report 5330548-7 (Version None)
Quarter: 2007Q2

REPORT INFORMATION
  Report Type: 
  Country: None (occurrence: None)
  Receive Date: 20070516
  Receipt Date: 20070504
  Transmission Date: 20071010
  Serious: Yes (Other)
  Sender: FDA-Public Use
  Company Number: 100#03#2007-01580

PATIENT
  Age: 56 Year
  Sex: Male

DRUGS (4)
  1. CARBOPLATIN [Suspect]
     Indication: LUNG NEOPLASM MALIGNANT
  2. GEMCITABINE [Suspect]
     Indication: LUNG NEOPLASM MALIGNANT
  3. DEXAMETHASONE [Suspect]
     Indication: DRUG USE FOR UNKNOWN INDICATION
     Dosage: 6 MG
  4. MOVICOL (NULYTELY) (MACROGOL 3350, POTASSIUM CHLORIDE, SODIUM BICARBON [Suspect]
     Indication: FAECALOMA
     Route: 048
     Dates: start: 20070309

REACTIONS (2)
  - HYPOALBUMINAEMIA [None]
  - OEDEMA PERIPHERAL [None]
